FAERS Safety Report 24428452 (Version 1)
Quarter: 2024Q4

REPORT INFORMATION
  Report Type: Spontaneous
  Country: US (occurrence: None)
  Receive Date: 20241011
  Receipt Date: 20241011
  Transmission Date: 20250115
  Serious: Yes (Hospitalization)
  Sender: Public
  Company Number: None

PATIENT
  Sex: Male

DRUGS (2)
  1. TALTZ [Suspect]
     Active Substance: IXEKIZUMAB
     Route: 042
     Dates: start: 202311
  2. TALTZAUTO INJ (2-PAK) [Concomitant]

REACTIONS (2)
  - Injection site rash [None]
  - Product storage error [None]
